FAERS Safety Report 7664967-0 (Version None)
Quarter: 2011Q3

REPORT INFORMATION
  Report Type: 
  Country: None (occurrence: None)
  Receive Date: 20110806
  Receipt Date: 20110118
  Transmission Date: 20111222
  Serious: No
  Sender: FDA-Public Use
  Company Number: US-ABBOTT-10P-163-0691736-00

PATIENT
  Sex: Male
  Weight: 65.83 kg

DRUGS (11)
  1. NIASPAN [Suspect]
     Route: 048
     Dates: start: 20110101
  2. ASPIRIN [Concomitant]
     Indication: PRODUCT USED FOR UNKNOWN INDICATION
     Dosage: SPORADIC USE
     Route: 048
     Dates: start: 20080101
  3. NIASPAN [Suspect]
     Route: 048
     Dates: start: 20080101, end: 20100101
  4. ZOCOR [Suspect]
     Indication: HIGH DENSITY LIPOPROTEIN DECREASED
     Dosage: X 2 MOS
     Route: 048
     Dates: start: 20100101, end: 20100101
  5. VASOTEC [Concomitant]
     Indication: HYPERTENSION
     Route: 048
  6. NIASPAN [Suspect]
     Route: 048
     Dates: start: 20101214, end: 20110101
  7. DYNACIRC [Concomitant]
     Indication: HYPERTENSION
     Route: 048
  8. NIASPAN [Suspect]
     Indication: BLOOD TRIGLYCERIDES INCREASED
     Route: 048
     Dates: start: 20080101, end: 20080101
  9. HYDROCHLOROTHIAZIDE [Concomitant]
     Indication: HYPERTENSION
     Route: 048
  10. TENORMIN [Concomitant]
     Indication: HYPERTENSION
     Route: 048
  11. IBUPROFEN [Concomitant]
     Indication: PRODUCT USED FOR UNKNOWN INDICATION
     Dosage: SPORADIC USE
     Route: 048
     Dates: start: 20080101

REACTIONS (5)
  - NO THERAPEUTIC RESPONSE [None]
  - FLUSHING [None]
  - MUSCULAR WEAKNESS [None]
  - BLOOD CREATININE INCREASED [None]
  - PRURITUS [None]
